FAERS Safety Report 14480980 (Version 1)
Quarter: 2018Q1

REPORT INFORMATION
  Report Type: Spontaneous
  Country: US (occurrence: US)
  Receive Date: 20180201
  Receipt Date: 20180201
  Transmission Date: 20180509
  Serious: No
  Sender: FDA-Public Use
  Company Number: None

PATIENT
  Age: 59 Year
  Sex: Female
  Weight: 76 kg

DRUGS (1)
  1. HERCEPTIN [Suspect]
     Active Substance: TRASTUZUMAB
     Indication: BREAST CANCER
     Dosage: ?          OTHER FREQUENCY:Q 21 DAYS;?
     Route: 041
     Dates: start: 20170810, end: 20180125

REACTIONS (4)
  - Infusion related reaction [None]
  - Sneezing [None]
  - Throat irritation [None]
  - Nasal congestion [None]

NARRATIVE: CASE EVENT DATE: 20180125
